FAERS Safety Report 23518891 (Version 1)
Quarter: 2024Q1

REPORT INFORMATION
  Report Type: 
  Country: None (occurrence: None)
  Receive Date: 20240213
  Receipt Date: 20240213
  Transmission Date: 20240410
  Serious: No
  Sender: FDA-Public Use
  Company Number: US-ROCHE-3507632

PATIENT

DRUGS (4)
  1. OCREVUS [Suspect]
     Active Substance: OCRELIZUMAB
     Dosage: DATE OF TREATMENT: 02/OCT/2017, 16/OCT/2017, 09/APR/2018, 02/NOV/2020.
     Dates: start: 20171002
  2. BENADRYL [Suspect]
     Active Substance: DIPHENHYDRAMINE HYDROCHLORIDE
  3. COPAXONE [Concomitant]
     Active Substance: GLATIRAMER ACETATE
     Dates: start: 201410
  4. ADVIL [Concomitant]
     Active Substance: IBUPROFEN
     Dates: start: 202312, end: 202401

REACTIONS (4)
  - Pneumonia [None]
  - Sepsis [None]
  - COVID-19 [None]
  - Somnolence [None]

NARRATIVE: CASE EVENT DATE: 20171002
